FAERS Safety Report 7465709-4 (Version None)
Quarter: 2011Q2

REPORT INFORMATION
  Report Type: 
  Country: None (occurrence: None)
  Receive Date: 20110509
  Receipt Date: 20110426
  Transmission Date: 20111010
  Serious: Yes (Hospitalization)
  Sender: FDA-Public Use
  Company Number: B0715323A

PATIENT
  Sex: Female

DRUGS (5)
  1. ARIXTRA [Suspect]
     Indication: ATRIAL FIBRILLATION
     Dosage: 1INJ PER DAY
     Route: 058
     Dates: end: 20110312
  2. COUMADIN [Suspect]
     Dosage: 10MG THREE TIMES PER DAY
     Route: 048
     Dates: end: 20110312
  3. PARACETAMOL [Concomitant]
     Dosage: 1G THREE TIMES PER DAY
     Route: 065
  4. KENZEN [Concomitant]
     Dosage: 8MG IN THE MORNING
     Route: 065
  5. MEMANTINE [Concomitant]
     Dosage: 10MG IN THE MORNING
     Route: 065

REACTIONS (6)
  - HAEMATOMA [None]
  - INDURATION [None]
  - OVERDOSE [None]
  - OFF LABEL USE [None]
  - OEDEMA PERIPHERAL [None]
  - INCORRECT DRUG ADMINISTRATION DURATION [None]
